FAERS Safety Report 14995204 (Version 4)
Quarter: 2018Q3

REPORT INFORMATION
  Report Type: Spontaneous
  Country: JP (occurrence: JP)
  Receive Date: 20180611
  Receipt Date: 20180914
  Transmission Date: 20181010
  Serious: Yes (Hospitalization, Other)
  Sender: FDA-Public Use
  Company Number: JP-PFIZER INC-2018219600

PATIENT
  Age: 68 Year
  Sex: Female
  Weight: 59 kg

DRUGS (4)
  1. IBRANCE [Suspect]
     Active Substance: PALBOCICLIB
     Dosage: 100 MG, DAILY
     Route: 048
     Dates: start: 20180418, end: 20180509
  2. IBRANCE [Suspect]
     Active Substance: PALBOCICLIB
     Dosage: 100 MG, DAILY
     Route: 048
     Dates: start: 20180516, end: 20180522
  3. FASLODEX [Suspect]
     Active Substance: FULVESTRANT
     Dosage: 500 MG, 1X/DAY
     Route: 030
     Dates: start: 20171114, end: 20180529
  4. IBRANCE [Suspect]
     Active Substance: PALBOCICLIB
     Dosage: 125 MG, DAILY
     Route: 048
     Dates: start: 20180307, end: 20180328

REACTIONS (13)
  - Interstitial lung disease [Recovering/Resolving]
  - Cough [Recovering/Resolving]
  - Bronchitis [Unknown]
  - Gait disturbance [Unknown]
  - Condition aggravated [Recovering/Resolving]
  - Neoplasm progression [Unknown]
  - Oropharyngeal pain [Unknown]
  - Infectious pleural effusion [Unknown]
  - Pyrexia [Recovered/Resolved]
  - Headache [Recovering/Resolving]
  - Tremor [Unknown]
  - Fall [Unknown]
  - Ascites [Unknown]

NARRATIVE: CASE EVENT DATE: 2018
